FAERS Safety Report 4553066-2 (Version None)
Quarter: 2005Q1

REPORT INFORMATION
  Report Type: 
  Country: None (occurrence: None)
  Receive Date: 20050114
  Receipt Date: 20041129
  Transmission Date: 20050727
  Serious: Yes (Hospitalization)
  Sender: FDA-Public Use
  Company Number: PHHO2004US17217

PATIENT
  Age: 53 Year
  Sex: Female
  Weight: 111 kg

DRUGS (5)
  1. ZOLOFT [Concomitant]
     Indication: DEPRESSION
     Dosage: 100 MG, QD
     Route: 048
     Dates: start: 20010101
  2. SYNTHROID [Concomitant]
     Indication: HYPOTHYROIDISM
     Dosage: 125 MG, QD
     Route: 048
     Dates: start: 20040101
  3. ZOLEDRONIC ACID VS PLACEBO [Suspect]
     Indication: OSTEOPOROSIS PROPHYLAXIS
     Dosage: 5 MG
     Route: 042
     Dates: start: 20041123
  4. PREVACID [Concomitant]
     Indication: GASTROOESOPHAGEAL REFLUX DISEASE
     Dosage: 30 ML, QD
     Route: 048
     Dates: start: 19940101
  5. PROTONIX [Concomitant]

REACTIONS (10)
  - ASTHENIA [None]
  - FATIGUE [None]
  - FLUSHING [None]
  - HYPERHIDROSIS [None]
  - INFLUENZA LIKE ILLNESS [None]
  - LOSS OF CONSCIOUSNESS [None]
  - MITRAL VALVE INCOMPETENCE [None]
  - PAIN [None]
  - SYNCOPE [None]
  - TRICUSPID VALVE INCOMPETENCE [None]
